FAERS Safety Report 18780840 (Version 1)
Quarter: 2021Q1

REPORT INFORMATION
  Report Type: Spontaneous
  Country: US (occurrence: US)
  Receive Date: 20210123
  Receipt Date: 20210123
  Transmission Date: 20210419
  Serious: Yes (Life-Threatening)
  Sender: FDA-Public Use
  Company Number: None

PATIENT
  Age: 66 Year
  Sex: Female
  Weight: 90 kg

DRUGS (3)
  1. ARMOUR THYROID [Suspect]
     Active Substance: THYROID, PORCINE
     Indication: THYROIDECTOMY
     Dosage: ?          QUANTITY:90 TABLET(S);?
     Route: 048
     Dates: start: 20201227, end: 20210105
  2. VITAMIN B12 [Concomitant]
     Active Substance: CYANOCOBALAMIN
  3. VIT D [Concomitant]
     Active Substance: VITAMIN D NOS

REACTIONS (14)
  - Chest discomfort [None]
  - Feeling hot [None]
  - Blood pressure increased [None]
  - Electrocardiogram QRS complex abnormal [None]
  - Dyspnoea [None]
  - Product formulation issue [None]
  - Illness [None]
  - Heart rate irregular [None]
  - Vomiting [None]
  - Fluid retention [None]
  - Blood thyroid stimulating hormone increased [None]
  - Dizziness [None]
  - Fatigue [None]
  - Blood parathyroid hormone abnormal [None]

NARRATIVE: CASE EVENT DATE: 20210103
